FAERS Safety Report 20017408 (Version 1)
Quarter: 2021Q4

REPORT INFORMATION
  Report Type: Spontaneous
  Country: FI (occurrence: FI)
  Receive Date: 20211030
  Receipt Date: 20211030
  Transmission Date: 20220303
  Serious: Yes (Other)
  Sender: FDA-Public Use
  Company Number: FI-NOVARTISPH-NVSC2021FI247824

PATIENT
  Age: 56 Year
  Sex: Female

DRUGS (2)
  1. ATORVASTATIN [Suspect]
     Active Substance: ATORVASTATIN
     Indication: Product used for unknown indication
     Dosage: 40 MG
     Route: 048
     Dates: start: 2020
  2. ATORVASTATIN [Suspect]
     Active Substance: ATORVASTATIN
     Dosage: 60 MG, DAILY (RATIOPHARM)
     Route: 048

REACTIONS (1)
  - Vitreous opacities [Not Recovered/Not Resolved]
